FAERS Safety Report 13081388 (Version 3)
Quarter: 2022Q2

REPORT INFORMATION
  Report Type: Spontaneous
  Country: US (occurrence: US)
  Receive Date: 20170103
  Receipt Date: 20220418
  Transmission Date: 20220721
  Serious: Yes (Hospitalization, Other)
  Sender: FDA-Public Use
  Company Number: US-PFIZER INC-2016596908

PATIENT
  Age: 81 Year
  Sex: Female
  Weight: 79.365 kg

DRUGS (5)
  1. LYRICA [Suspect]
     Active Substance: PREGABALIN
     Indication: Trigeminal neuralgia
     Dosage: 50 MG, 3X/DAY
     Route: 048
     Dates: start: 2014
  2. LYRICA [Suspect]
     Active Substance: PREGABALIN
     Dosage: 100 MG, 3X/DAY
  3. LYRICA [Suspect]
     Active Substance: PREGABALIN
     Dosage: 125 MG, 3X/DAY (100MG TABLET AND ONE 25MG TABLET THREE TIMES A DAY, AT 9AM, 3PM, AND 9PM)
     Dates: start: 202110
  4. PREDNISONE [Concomitant]
     Active Substance: PREDNISONE
     Dosage: 5 MG, UNK
     Route: 048
  5. ATORVASTATIN [Concomitant]
     Active Substance: ATORVASTATIN
     Dosage: 20 MG, 1X/DAY
     Dates: start: 202107

REACTIONS (14)
  - Pneumonia [Unknown]
  - Pemphigoid [Unknown]
  - Cataract [Not Recovered/Not Resolved]
  - Immunodeficiency [Unknown]
  - Drug ineffective [Unknown]
  - Poor quality product administered [Unknown]
  - Product storage error [Unknown]
  - Blepharitis [Unknown]
  - Lymphoedema [Unknown]
  - Pain [Unknown]
  - Product dose omission issue [Unknown]
  - Visual impairment [Unknown]
  - Gait disturbance [Unknown]
  - Cerebral disorder [Unknown]

NARRATIVE: CASE EVENT DATE: 20161222
